FAERS Safety Report 20811575 (Version 2)
Quarter: 2022Q4

REPORT INFORMATION
  Report Type: Report from Study
  Country: US (occurrence: US)
  Receive Date: 20220510
  Receipt Date: 20221020
  Transmission Date: 20230112
  Serious: Yes (Hospitalization)
  Sender: FDA-Public Use
  Company Number: US-KYOWAKIRIN-2022BKK006727

PATIENT

DRUGS (1)
  1. NOURIANZ [Suspect]
     Active Substance: ISTRADEFYLLINE
     Indication: Parkinson^s disease
     Dosage: 20 MG, QD, ONCE DAILY
     Route: 048
     Dates: start: 20210929

REACTIONS (5)
  - Hospitalisation [Unknown]
  - Emergency care [Unknown]
  - Vertigo [Unknown]
  - Dizziness [Unknown]
  - Insomnia [Unknown]
